FAERS Safety Report 11473939 (Version 1)
Quarter: 2015Q3

REPORT INFORMATION
  Report Type: Spontaneous
  Country: US (occurrence: None)
  Receive Date: 20150908
  Receipt Date: 20150908
  Transmission Date: 20151125
  Serious: Yes (Hospitalization)
  Sender: FDA-Public Use
  Company Number: None

PATIENT
  Age: 67 Year
  Sex: Male
  Weight: 100.9 kg

DRUGS (1)
  1. GLIPIZIDE. [Suspect]
     Active Substance: GLIPIZIDE
     Indication: DIABETES MELLITUS
     Dosage: 10 MG ?AM?PO
     Route: 048
     Dates: start: 20150512, end: 20150623

REACTIONS (2)
  - Drug intolerance [None]
  - Hypoglycaemia [None]

NARRATIVE: CASE EVENT DATE: 20150623
